FAERS Safety Report 6176046-2 (Version None)
Quarter: 2009Q2

REPORT INFORMATION
  Report Type: 
  Country: None (occurrence: None)
  Receive Date: 20090501
  Receipt Date: 20090421
  Transmission Date: 20091009
  Serious: Yes (Other)
  Sender: FDA-Public Use
  Company Number: IE-ROCHE-629228

PATIENT
  Sex: Male

DRUGS (1)
  1. MIRCERA [Suspect]
     Route: 065

REACTIONS (1)
  - GASTROINTESTINAL CARCINOMA [None]
